FAERS Safety Report 8404432-6 (Version None)
Quarter: 2012Q2

REPORT INFORMATION
  Report Type: 
  Country: None (occurrence: None)
  Receive Date: 20120601
  Receipt Date: 20111115
  Transmission Date: 20120825
  Serious: No
  Sender: FDA-Public Use
  Company Number: US-NOVEN-11US003631

PATIENT
  Sex: Male

DRUGS (2)
  1. DAYTRANA [Suspect]
     Dosage: 30 MG, UNK
  2. DAYTRANA [Suspect]
     Indication: ATTENTION DEFICIT/HYPERACTIVITY DISORDER
     Dosage: TWO 20 MG PATCHES QD
     Route: 062

REACTIONS (5)
  - AGGRESSION [None]
  - DISTURBANCE IN ATTENTION [None]
  - DRUG PRESCRIBING ERROR [None]
  - STARING [None]
  - WRONG TECHNIQUE IN DRUG USAGE PROCESS [None]
